FAERS Safety Report 14114055 (Version 2)
Quarter: 2017Q4

REPORT INFORMATION
  Report Type: Report from Study
  Country: DE (occurrence: DE)
  Receive Date: 20171023
  Receipt Date: 20171116
  Transmission Date: 20180321
  Serious: Yes (Hospitalization, Other)
  Sender: FDA-Public Use
  Company Number: PHHY2017DE154607

PATIENT
  Age: 68 Year
  Sex: Female
  Weight: 83 kg

DRUGS (1)
  1. ENTRESTO [Suspect]
     Active Substance: SACUBITRIL\VALSARTAN
     Indication: CARDIAC FAILURE CHRONIC
     Dosage: 1 DF (50MG, 24MG OF SACUBITRIL AND 26MG OF VALSARTAN), BID
     Route: 065
     Dates: start: 20160720, end: 20170721

REACTIONS (2)
  - Atrial fibrillation [Recovering/Resolving]
  - Mitral valve stenosis [Not Recovered/Not Resolved]

NARRATIVE: CASE EVENT DATE: 20170712
